FAERS Safety Report 20877034 (Version 7)
Quarter: 2022Q3

REPORT INFORMATION
  Report Type: Report from Study
  Country: ES (occurrence: ES)
  Receive Date: 20220526
  Receipt Date: 20220704
  Transmission Date: 20221027
  Serious: Yes (Other)
  Sender: FDA-Public Use
  Company Number: ES-ABBVIE-21K-144-3931627-00

PATIENT
  Sex: Male
  Weight: 85 kg

DRUGS (2)
  1. CARBIDOPA\LEVODOPA [Suspect]
     Active Substance: CARBIDOPA\LEVODOPA
     Indication: Parkinson^s disease
     Route: 050
     Dates: start: 20110920
  2. CARBIDOPA\LEVODOPA [Suspect]
     Active Substance: CARBIDOPA\LEVODOPA
     Route: 050

REACTIONS (9)
  - Embedded device [Not Recovered/Not Resolved]
  - Device use issue [Recovered/Resolved]
  - Off label use [Unknown]
  - Subcutaneous haematoma [Unknown]
  - Device dislocation [Recovered/Resolved]
  - Device dislocation [Recovered/Resolved]
  - Therapeutic product effect incomplete [Unknown]
  - Gastrointestinal wall thickening [Unknown]
  - Granuloma [Unknown]

NARRATIVE: CASE EVENT DATE: 20220101
